FAERS Safety Report 8170331-0 (Version None)
Quarter: 2012Q1

REPORT INFORMATION
  Report Type: 
  Country: None (occurrence: None)
  Receive Date: 20120106
  Receipt Date: 20110511
  Transmission Date: 20120608
  Serious: Yes (Hospitalization)
  Sender: FDA-Public Use
  Company Number: 117060

PATIENT
  Age: 37 Year
  Sex: Female
  Weight: 58 kg

DRUGS (1)
  1. CISPLATIN [Suspect]
     Indication: GASTRIC CANCER
     Dosage: 800MG/M2
     Dates: start: 20110421

REACTIONS (2)
  - DEHYDRATION [None]
  - VOMITING [None]
